FAERS Safety Report 4770881-0 (Version None)
Quarter: 2005Q3

REPORT INFORMATION
  Report Type: 
  Country: None (occurrence: None)
  Receive Date: 20050915
  Receipt Date: 20050905
  Transmission Date: 20060218
  Serious: Yes (Life-Threatening)
  Sender: FDA-Public Use
  Company Number: GB-ROCHE-416572

PATIENT
  Age: 25 Year
  Sex: Male
  Weight: 65 kg

DRUGS (4)
  1. ROACCUTANE [Suspect]
     Route: 048
     Dates: start: 20050715, end: 20050720
  2. RIFAMPICIN [Concomitant]
     Route: 048
     Dates: start: 20050519
  3. CLINDAMYCIN [Concomitant]
     Route: 048
     Dates: start: 20050519
  4. PREDNISOLONE [Concomitant]
     Route: 048
     Dates: start: 20050603

REACTIONS (1)
  - ANGIONEUROTIC OEDEMA [None]
